FAERS Safety Report 5405452-6 (Version None)
Quarter: 2007Q3

REPORT INFORMATION
  Report Type: 
  Country: None (occurrence: None)
  Receive Date: 20070803
  Receipt Date: 20070723
  Transmission Date: 20080115
  Serious: Yes (Hospitalization)
  Sender: FDA-Public Use
  Company Number: NL-PFIZER INC-2007048854

PATIENT
  Sex: Male
  Weight: 69 kg

DRUGS (5)
  1. SU-011,248 [Suspect]
     Indication: METASTATIC RENAL CELL CARCINOMA
     Route: 048
  2. TOLBUTAMIDE [Concomitant]
  3. DURATEARS [Concomitant]
  4. ATENOLOL [Concomitant]
  5. NORVASC [Concomitant]

REACTIONS (7)
  - ANXIETY [None]
  - BLOOD PRESSURE SYSTOLIC INCREASED [None]
  - CEREBRAL ISCHAEMIA [None]
  - COGNITIVE DISORDER [None]
  - CONFUSIONAL STATE [None]
  - PARKINSONISM [None]
  - PSYCHOTIC DISORDER [None]
